FAERS Safety Report 12588473 (Version 1)
Quarter: 2016Q3

REPORT INFORMATION
  Report Type: Spontaneous
  Country: US (occurrence: US)
  Receive Date: 20160725
  Receipt Date: 20160725
  Transmission Date: 20161109
  Serious: No
  Sender: FDA-Public Use
  Company Number: US-JNJFOC-20160701422

PATIENT
  Age: 75 Year
  Sex: Female
  Weight: 59.42 kg

DRUGS (2)
  1. TYLENOL EXTRA STRENGTH [Suspect]
     Active Substance: ACETAMINOPHEN
     Indication: GROIN PAIN
     Route: 048
     Dates: start: 20160602
  2. TYLENOL EXTRA STRENGTH [Suspect]
     Active Substance: ACETAMINOPHEN
     Indication: BACK PAIN
     Route: 048
     Dates: start: 20160602

REACTIONS (3)
  - Constipation [Recovered/Resolved]
  - Drug ineffective [Unknown]
  - Change of bowel habit [Recovered/Resolved]

NARRATIVE: CASE EVENT DATE: 20160627
